FAERS Safety Report 10996093 (Version 2)
Quarter: 2018Q2

REPORT INFORMATION
  Report Type: Spontaneous
  Country: IT (occurrence: IT)
  Receive Date: 20150407
  Receipt Date: 20180404
  Transmission Date: 20180711
  Serious: Yes (Other)
  Sender: FDA-Public Use
  Company Number: PHHY2014IT173640

PATIENT
  Age: 11 Year
  Sex: Female

DRUGS (1)
  1. GLIVEC [Suspect]
     Active Substance: IMATINIB MESYLATE
     Indication: CHRONIC MYELOID LEUKAEMIA
     Dosage: 340 MG/M2, QD
     Route: 065
     Dates: end: 200905

REACTIONS (2)
  - Pancreatitis [Unknown]
  - Sjogren^s syndrome [Unknown]
